FAERS Safety Report 7831845-3 (Version None)
Quarter: 2011Q4

REPORT INFORMATION
  Report Type: 
  Country: None (occurrence: None)
  Receive Date: 20111021
  Receipt Date: 20111010
  Transmission Date: 20120403
  Serious: Yes (Death, Hospitalization)
  Sender: FDA-Public Use
  Company Number: NL-PFIZER INC-2011232602

PATIENT
  Age: 51 Year
  Sex: Female
  Weight: 85.1 kg

DRUGS (4)
  1. REVATIO [Suspect]
     Indication: PULMONARY ARTERIAL HYPERTENSION
     Dosage: 20 MG, 3X/DAY
     Dates: start: 20040712, end: 20100318
  2. TREPROSTINIL SODIUM [Suspect]
     Dosage: 12.5 MG, 2X/DAY
     Dates: end: 20100318
  3. TRACLEER [Suspect]
     Indication: PULMONARY ARTERIAL HYPERTENSION
     Dosage: 125 MG, 2X/DAY
     Dates: start: 20030723, end: 20100318
  4. TREPROSTINIL SODIUM [Suspect]
     Indication: PULMONARY ARTERIAL HYPERTENSION
     Dosage: 11 MG, 2X/WEEK
     Route: 048
     Dates: start: 20071219

REACTIONS (1)
  - CORONARY ARTERY DISEASE [None]
